FAERS Safety Report 17084491 (Version 3)
Quarter: 2020Q1

REPORT INFORMATION
  Report Type: Spontaneous
  Country: US (occurrence: US)
  Receive Date: 20191127
  Receipt Date: 20200123
  Transmission Date: 20200409
  Serious: Yes (Other)
  Sender: FDA-Public Use
  Company Number: US-GLAXOSMITHKLINE-US2019GSK212264

PATIENT
  Sex: Female

DRUGS (4)
  1. PREVACID [Suspect]
     Active Substance: LANSOPRAZOLE
     Indication: GASTROOESOPHAGEAL REFLUX DISEASE
     Dosage: 60 MG
     Route: 065
  2. PREVACID [Suspect]
     Active Substance: LANSOPRAZOLE
     Indication: DYSPHAGIA
  3. PREVACID [Suspect]
     Active Substance: LANSOPRAZOLE
     Indication: DYSPHAGIA
  4. PREVACID [Suspect]
     Active Substance: LANSOPRAZOLE
     Indication: GASTROOESOPHAGEAL REFLUX DISEASE
     Dosage: 15 MG
     Route: 065

REACTIONS (9)
  - Blood creatinine increased [Unknown]
  - Proteinuria [Unknown]
  - Nephropathy [Unknown]
  - Renal injury [Unknown]
  - Renal impairment [Unknown]
  - Blood urine present [Unknown]
  - Chronic kidney disease [Not Recovered/Not Resolved]
  - Urinary retention [Unknown]
  - Dysuria [Unknown]
